FAERS Safety Report 6145598-0 (Version None)
Quarter: 2009Q2

REPORT INFORMATION
  Report Type: 
  Country: None (occurrence: None)
  Receive Date: 20090407
  Receipt Date: 20090331
  Transmission Date: 20091009
  Serious: No
  Sender: FDA-Public Use
  Company Number: PHHY2009SG09006

PATIENT
  Age: 69 Year
  Sex: Female

DRUGS (5)
  1. ACLASTA [Suspect]
     Indication: OSTEOPOROSIS
     Dosage: 5 MG
     Route: 042
     Dates: start: 20090224
  2. CALCIUM CARBONATE [Concomitant]
     Dosage: 900 MG
  3. CALCIUM CARBONATE [Concomitant]
     Dosage: 1800 MG
  4. VITAMIN D [Concomitant]
     Dosage: 400 IU
  5. VITAMIN D [Concomitant]
     Dosage: 800 IU

REACTIONS (1)
  - HYPOCALCAEMIA [None]
